FAERS Safety Report 24341160 (Version 1)
Quarter: 2024Q3

REPORT INFORMATION
  Report Type: Other
  Country: CN (occurrence: CN)
  Receive Date: 20240919
  Receipt Date: 20240919
  Transmission Date: 20241017
  Serious: Yes (Other)
  Sender: PRASCO
  Company Number: CN-Prasco Laboratories-PRAS20241149

PATIENT

DRUGS (4)
  1. DEXAMETHASONE [Suspect]
     Active Substance: DEXAMETHASONE
     Indication: B precursor type acute leukaemia
     Dosage: 9 MG/M2/DAY
     Route: 042
  2. BLINATUMOMAB [Suspect]
     Active Substance: BLINATUMOMAB
     Indication: B precursor type acute leukaemia
     Dosage: 9 MCG/DAY DAYS 8-14 AND 28 MCG/DAY DAYS 15-21
     Route: 065
  3. IDARUBICIN [Suspect]
     Active Substance: IDARUBICIN
     Indication: B precursor type acute leukaemia
     Dosage: 8 MG/M2
     Route: 042
  4. VINDESINE [Suspect]
     Active Substance: VINDESINE
     Indication: B precursor type acute leukaemia
     Dosage: 3 MG/M2, UP TO 4 MG
     Route: 042

REACTIONS (1)
  - Pyrexia [Unknown]
